FAERS Safety Report 8886161 (Version 1)
Quarter: 2012Q4

REPORT INFORMATION
  Report Type: Report from Study
  Country: US (occurrence: US)
  Receive Date: 20121105
  Receipt Date: 20121105
  Transmission Date: 20130627
  Serious: Yes (Other)
  Sender: FDA-Public Use
  Company Number: US-ABBOTT-12P-163-1002378-00

PATIENT
  Sex: Female
  Weight: 99.88 kg

DRUGS (1)
  1. HUMIRA [Suspect]
     Indication: CROHN^S DISEASE
     Dates: start: 2010, end: 201203

REACTIONS (8)
  - Cyst [Recovered/Resolved]
  - Localised infection [Not Recovered/Not Resolved]
  - Erythema [Not Recovered/Not Resolved]
  - Feeling hot [Not Recovered/Not Resolved]
  - Hair texture abnormal [Not Recovered/Not Resolved]
  - Sweat discolouration [Not Recovered/Not Resolved]
  - Localised infection [Unknown]
  - Localised infection [Unknown]
